FAERS Safety Report 7583227-X (Version None)
Quarter: 2011Q2

REPORT INFORMATION
  Report Type: 
  Country: None (occurrence: None)
  Receive Date: 20110623
  Receipt Date: 20110614
  Transmission Date: 20111010
  Serious: Yes (Other)
  Sender: FDA-Public Use
  Company Number: LEO-2011-00439

PATIENT
  Age: 72 Year
  Sex: Female
  Weight: 94 kg

DRUGS (5)
  1. INNOHEP [Suspect]
     Indication: JOINT PROSTHESIS USER
     Dosage: 0.5 ML, SUBCUTANEOUS
     Route: 058
     Dates: start: 20110505
  2. LANSOPRAZOLE (LANSORPAZOLE) [Concomitant]
  3. IESPOR (CEFAZOLIN SODIUM) [Concomitant]
  4. MOXIFLOXACIN (MOXIFLOXACIN) (TABLET) [Concomitant]
  5. PAROL (PARACETAMOL) (TABLET) [Concomitant]

REACTIONS (3)
  - ECCHYMOSIS [None]
  - NODULE [None]
  - INDURATION [None]
